FAERS Safety Report 24325704 (Version 1)
Quarter: 2024Q3

REPORT INFORMATION
  Report Type: Spontaneous
  Country: US (occurrence: US)
  Receive Date: 20240917
  Receipt Date: 20240917
  Transmission Date: 20241016
  Serious: No
  Sender: BIOGEN
  Company Number: US-BBU-2024000276

PATIENT
  Age: 16 Year
  Sex: Female

DRUGS (1)
  1. TOCILIZUMAB [Suspect]
     Active Substance: TOCILIZUMAB
     Indication: Systemic lupus erythematosus

REACTIONS (2)
  - Myalgia [Unknown]
  - Off label use [Unknown]
